FAERS Safety Report 8368151-7 (Version None)
Quarter: 2012Q2

REPORT INFORMATION
  Report Type: 
  Country: None (occurrence: None)
  Receive Date: 20120517
  Receipt Date: 20120509
  Transmission Date: 20120825
  Serious: Yes (Other)
  Sender: FDA-Public Use
  Company Number: US-ABBOTT-12P-163-0934234-00

PATIENT
  Age: 53 Year
  Sex: Male

DRUGS (2)
  1. HUMIRA [Suspect]
     Indication: PSORIASIS
     Dates: start: 20030401, end: 20111001
  2. HUMIRA [Suspect]
     Dates: start: 20120101

REACTIONS (3)
  - POLYP [None]
  - RECTAL HAEMORRHAGE [None]
  - POSTOPERATIVE WOUND INFECTION [None]
